FAERS Safety Report 8159464-2 (Version None)
Quarter: 2012Q1

REPORT INFORMATION
  Report Type: 
  Country: None (occurrence: None)
  Receive Date: 20120223
  Receipt Date: 20120215
  Transmission Date: 20120608
  Serious: Yes (Other)
  Sender: FDA-Public Use
  Company Number: US-BAYER-US-2007-033540

PATIENT
  Age: 37 Year
  Sex: Female
  Weight: 58 kg

DRUGS (6)
  1. YAZ [Suspect]
     Indication: ACNE
     Dosage: 1 TAB(S), 1X/DAY [DAILY DOSE: 1 TAB(S)]
     Route: 048
     Dates: start: 20070329, end: 20070827
  2. CLARITIN-D [Concomitant]
  3. YAZ [Suspect]
     Indication: PREMENSTRUAL SYNDROME
  4. LEVOXYL [Concomitant]
     Indication: THYROID HORMONE REPLACEMENT THERAPY
     Dosage: 88-112 MCG DAILY
     Dates: start: 20050801, end: 20111101
  5. CYTOMEL [Concomitant]
     Indication: THYROID HORMONE REPLACEMENT THERAPY
     Dosage: 0.5 MG, QD
     Dates: start: 20070226
  6. LEVOTHYROXINE SODIUM [Concomitant]
     Indication: THYROID DISORDER
     Dosage: UNK, UNK

REACTIONS (23)
  - EMOTIONAL DISTRESS [None]
  - AMNESIA [None]
  - VISUAL FIELD DEFECT [None]
  - ANXIETY [None]
  - BLINDNESS [None]
  - SLEEP DISORDER [None]
  - DEPRESSION [None]
  - HYPOAESTHESIA [None]
  - NAUSEA [None]
  - COGNITIVE DISORDER [None]
  - BLINDNESS TRANSIENT [None]
  - VOMITING [None]
  - FEAR [None]
  - ATRIAL SEPTAL DEFECT [None]
  - SINUSITIS [None]
  - MIGRAINE [None]
  - INJURY [None]
  - PAIN [None]
  - CEREBROVASCULAR ACCIDENT [None]
  - PARAESTHESIA [None]
  - DISTURBANCE IN ATTENTION [None]
  - VISION BLURRED [None]
  - EYE PAIN [None]
